FAERS Safety Report 9529742 (Version 1)
Quarter: 2013Q3

REPORT INFORMATION
  Report Type: Spontaneous
  Country: FR (occurrence: FR)
  Receive Date: 20130917
  Receipt Date: 20130917
  Transmission Date: 20140515
  Serious: Yes (Hospitalization)
  Sender: FDA-Public Use
  Company Number: FR-GLAXOSMITHKLINE-B0921670A

PATIENT
  Age: 55 Year
  Sex: Female

DRUGS (4)
  1. DEROXAT [Suspect]
     Indication: DEPRESSION
     Dosage: 20MG PER DAY
     Route: 048
  2. BACLOFENE [Suspect]
     Indication: OFF LABEL USE
     Dosage: 30MG FOUR TIMES PER DAY
     Route: 048
     Dates: end: 20130903
  3. STILNOX [Concomitant]
     Route: 065
  4. DONORMYL [Concomitant]
     Route: 065

REACTIONS (4)
  - Confusional state [Recovered/Resolved]
  - Hallucination, visual [Recovered/Resolved]
  - Trance [Recovered/Resolved]
  - Intentional overdose [Unknown]
